FAERS Safety Report 6858997-6 (Version None)
Quarter: 2010Q3

REPORT INFORMATION
  Report Type: 
  Country: None (occurrence: None)
  Receive Date: 20100719
  Receipt Date: 20080219
  Transmission Date: 20110219
  Serious: No
  Sender: FDA-Public Use
  Company Number: US-PFIZER INC-2008017027

PATIENT
  Sex: Female
  Weight: 54.545 kg

DRUGS (2)
  1. CHANTIX [Suspect]
     Indication: SMOKING CESSATION THERAPY
     Dates: start: 20080121, end: 20080202
  2. CYMBALTA [Interacting]

REACTIONS (4)
  - ABNORMAL DREAMS [None]
  - AMNESIA [None]
  - ANGER [None]
  - DRUG INTERACTION [None]
